FAERS Safety Report 5009922-4 (Version None)
Quarter: 2006Q2

REPORT INFORMATION
  Report Type: 
  Country: None (occurrence: None)
  Receive Date: 20060516
  Receipt Date: 20060516
  Transmission Date: 20061013
  Serious: Yes (Hospitalization, Other)
  Sender: FDA-Public Use
  Company Number: None

PATIENT
  Age: 78 Year
  Sex: Male

DRUGS (1)
  1. HUMAN CORNEA HCT/P [Suspect]

REACTIONS (4)
  - CORNEAL GRAFT REJECTION [None]
  - ENTEROCOCCAL INFECTION [None]
  - PATHOGEN RESISTANCE [None]
  - THERAPEUTIC PRODUCT CONTAMINATION [None]
